FAERS Safety Report 8051483-X (Version None)
Quarter: 2012Q1

REPORT INFORMATION
  Report Type: 
  Country: None (occurrence: None)
  Receive Date: 20120117
  Receipt Date: 20120105
  Transmission Date: 20120608
  Serious: Yes (Other)
  Sender: FDA-Public Use
  Company Number: US-ASTRAZENECA-2011SE50785

PATIENT
  Age: 56 Year
  Sex: Female

DRUGS (1)
  1. NEXIUM [Suspect]
     Route: 048

REACTIONS (7)
  - BACK PAIN [None]
  - ROAD TRAFFIC ACCIDENT [None]
  - DRUG DOSE OMISSION [None]
  - BEDRIDDEN [None]
  - DYSPEPSIA [None]
  - MYOCARDIAL INFARCTION [None]
  - GASTROOESOPHAGEAL REFLUX DISEASE [None]
